FAERS Safety Report 4532429-5 (Version None)
Quarter: 2004Q4

REPORT INFORMATION
  Report Type: 
  Country: None (occurrence: None)
  Receive Date: 20041220
  Receipt Date: 20041214
  Transmission Date: 20050328
  Serious: Yes (Life-Threatening, Disabling)
  Sender: FDA-Public Use
  Company Number: US-MERCK-0412USA01806

PATIENT
  Age: 45 Year
  Sex: Female

DRUGS (2)
  1. VIOXX [Suspect]
     Indication: BACK PAIN
     Route: 048
     Dates: start: 20020710, end: 20020710
  2. NORVASC [Concomitant]
     Route: 065

REACTIONS (3)
  - DIZZINESS [None]
  - DYSPNOEA [None]
  - PRESCRIBED OVERDOSE [None]
